FAERS Safety Report 7083364-2 (Version None)
Quarter: 2010Q4

REPORT INFORMATION
  Report Type: 
  Country: None (occurrence: None)
  Receive Date: 20101104
  Receipt Date: 20101026
  Transmission Date: 20110411
  Serious: Yes (Hospitalization)
  Sender: FDA-Public Use
  Company Number: PHHY2010FR72833

PATIENT
  Sex: Female

DRUGS (7)
  1. TEGRETOL [Suspect]
     Dosage: 200 MG/DAY
     Route: 048
     Dates: start: 20070101
  2. ESCITALOPRAM [Suspect]
     Dosage: 5 MG/DAY
     Route: 048
     Dates: start: 20070101
  3. TRANXENE [Suspect]
     Dosage: 15 MG/DAY
     Route: 048
     Dates: start: 20070101
  4. TERCIAN [Suspect]
     Dosage: 90 MG/ML DAILY
     Dates: start: 20070101
  5. HALDOL [Suspect]
     Dosage: 5 MG/DAY
     Route: 048
     Dates: start: 20080222
  6. ABILIFY [Suspect]
     Dosage: UNK
  7. FOLIC ACID [Concomitant]
     Dosage: UNK

REACTIONS (5)
  - CAESAREAN SECTION [None]
  - DRUG EXPOSURE DURING PREGNANCY [None]
  - HYPERALBUMINAEMIA [None]
  - PRE-ECLAMPSIA [None]
  - PREMATURE LABOUR [None]
